FAERS Safety Report 4838044-8 (Version None)
Quarter: 2005Q4

REPORT INFORMATION
  Report Type: 
  Country: None (occurrence: None)
  Receive Date: 20051128
  Receipt Date: 20050909
  Transmission Date: 20060501
  Serious: Yes (Hospitalization)
  Sender: FDA-Public Use
  Company Number: 200516530US

PATIENT
  Age: 61 Year
  Sex: Male
  Weight: 84 kg

DRUGS (14)
  1. LOVENOX [Suspect]
     Indication: DEEP VEIN THROMBOSIS
     Route: 058
     Dates: start: 20050902, end: 20050907
  2. LOVENOX [Suspect]
     Dates: start: 20050909
  3. COUMADIN [Concomitant]
     Indication: DEEP VEIN THROMBOSIS
     Route: 048
  4. ASPIRIN [Concomitant]
     Route: 048
  5. ASPIRIN [Concomitant]
     Route: 048
     Dates: start: 20050909
  6. TRAZODONE [Concomitant]
  7. XANAX [Concomitant]
     Indication: ANXIETY
     Dosage: DOSE: 1 (2-3 TIMES DAILY PRN)
     Route: 048
  8. NITROGLYCERIN [Concomitant]
     Indication: CHEST PAIN
     Dosage: DOSE: 0.4 (PRN) SL
  9. DOCUSATE SODIUM [Concomitant]
     Dosage: DOSE: UNK
  10. LIPITOR [Concomitant]
     Route: 048
  11. METOPROLOL TARTRATE [Concomitant]
  12. PERCOCET-5 [Concomitant]
     Dosage: DOSE: UNK
  13. METHADONE [Concomitant]
  14. PROTONIX [Concomitant]

REACTIONS (4)
  - ANGINA PECTORIS [None]
  - CHEST PAIN [None]
  - ELECTROCARDIOGRAM ST SEGMENT ELEVATION [None]
  - MYOCARDIAL ISCHAEMIA [None]
